FAERS Safety Report 14355038 (Version 2)
Quarter: 2018Q1

REPORT INFORMATION
  Report Type: Spontaneous
  Country: US (occurrence: US)
  Receive Date: 20180105
  Receipt Date: 20180329
  Transmission Date: 20180509
  Serious: Yes (Other)
  Sender: FDA-Public Use
  Company Number: US-PFIZER INC-2018004006

PATIENT
  Age: 63 Year
  Sex: Female

DRUGS (2)
  1. WOMEN ^S DAILY FORMULA [Suspect]
     Active Substance: VITAMINS
     Dosage: UNK (I TOOK ONE )
  2. TIKOSYN [Suspect]
     Active Substance: DOFETILIDE
     Dosage: UNK

REACTIONS (4)
  - Breast cancer [Unknown]
  - Ill-defined disorder [Unknown]
  - Heart rate increased [Unknown]
  - Dry eye [Unknown]
